FAERS Safety Report 6576916-7 (Version None)
Quarter: 2010Q1

REPORT INFORMATION
  Report Type: 
  Country: None (occurrence: None)
  Receive Date: 20100210
  Receipt Date: 20100204
  Transmission Date: 20100710
  Serious: Yes (Other)
  Sender: FDA-Public Use
  Company Number: B0632484A

PATIENT
  Sex: Female
  Weight: 66 kg

DRUGS (5)
  1. SERETIDE [Suspect]
     Indication: CHRONIC OBSTRUCTIVE PULMONARY DISEASE
     Dosage: 500MG TWICE PER DAY
     Route: 055
     Dates: start: 20090101
  2. KALETRA [Suspect]
     Indication: HIV INFECTION
     Route: 048
     Dates: start: 20080801
  3. PREDNISON [Suspect]
     Indication: CHRONIC OBSTRUCTIVE PULMONARY DISEASE
     Dosage: 30MG AS REQUIRED
     Route: 048
  4. TRUVADA [Concomitant]
     Indication: HIV INFECTION
     Route: 048
     Dates: start: 20060201
  5. METHADONE HCL [Concomitant]
     Dosage: 22.5MG TWICE PER DAY
     Route: 048

REACTIONS (3)
  - ADENOMA BENIGN [None]
  - CUSHING'S SYNDROME [None]
  - OBESITY [None]
